FAERS Safety Report 4489271-3 (Version None)
Quarter: 2004Q4

REPORT INFORMATION
  Report Type: 
  Country: None (occurrence: None)
  Receive Date: 20041029
  Receipt Date: 20041020
  Transmission Date: 20050328
  Serious: Yes (Life-Threatening, Hospitalization)
  Sender: FDA-Public Use
  Company Number: DEWYE125320OCT04

PATIENT
  Sex: Female
  Weight: 43 kg

DRUGS (7)
  1. ENBREL [Suspect]
     Indication: PSORIATIC ARTHROPATHY
     Route: 058
     Dates: start: 20031101, end: 20040526
  2. CELEBREX [Suspect]
     Route: 048
     Dates: start: 20031101, end: 20040526
  3. DESOGESTREL AND ETHINYL ESTRADIOL [Suspect]
     Dosage: 1 TBL. 21X PER 1 CYCLE
     Route: 048
     Dates: start: 19980101, end: 20020101
  4. ESTRADIOL/DESOGESTREL [Concomitant]
     Route: 048
     Dates: start: 20020101, end: 20040526
  5. CALCIUM GLUCONATE [Concomitant]
     Route: 048
     Dates: start: 20030101, end: 20040526
  6. PREDNISOLONE [Concomitant]
     Route: 048
     Dates: start: 19990101
  7. URSODEOXYCHOLIC ACID [Concomitant]
     Route: 048
     Dates: start: 20031001, end: 20040526

REACTIONS (2)
  - CONDITION AGGRAVATED [None]
  - HEPATOTOXICITY [None]
